FAERS Safety Report 4485279-2 (Version None)
Quarter: 2004Q3

REPORT INFORMATION
  Report Type: 
  Country: None (occurrence: None)
  Receive Date: 20040921
  Receipt Date: 20040624
  Transmission Date: 20050211
  Serious: Yes (Death, Hospitalization, Other)
  Sender: FDA-Public Use
  Company Number: 163-20785-04060643

PATIENT
  Age: 86 Year
  Sex: Female
  Weight: 77.5651 kg

DRUGS (8)
  1. THALOMID [Suspect]
     Indication: MYELODYSPLASTIC SYNDROME
     Dosage: 100 MG, AT BEDTIME, ORAL
     Route: 048
     Dates: start: 20040301, end: 20040614
  2. PROCRIT (ERYTHROPOIETIN) [Suspect]
     Indication: MYELODYSPLASTIC SYNDROME
     Dosage: 40,000 TO 60,000, SUBCUTANEOUS
     Route: 058
     Dates: start: 20040301, end: 20040614
  3. BACTRIM [Suspect]
     Indication: URINARY TRACT INFECTION
     Dosage: ORAL
     Route: 048
     Dates: start: 20040601, end: 20040601
  4. NIFEDIPINE ER (NIFEDIPINE) [Concomitant]
  5. HYDROCHLOROTHIAZIDE (DYAZIDE) [Concomitant]
  6. ATENOLOL [Concomitant]
  7. ZESTRIL [Concomitant]
  8. ASPIRIN [Concomitant]

REACTIONS (8)
  - ASTHENIA [None]
  - DEATH [None]
  - DISEASE PROGRESSION [None]
  - DIZZINESS [None]
  - DRUG HYPERSENSITIVITY [None]
  - HYPOTENSION [None]
  - PYREXIA [None]
  - URINARY TRACT INFECTION [None]
